FAERS Safety Report 6686048-5 (Version None)
Quarter: 2010Q2

REPORT INFORMATION
  Report Type: 
  Country: None (occurrence: None)
  Receive Date: 20100419
  Receipt Date: 20100409
  Transmission Date: 20101027
  Serious: Yes (Hospitalization)
  Sender: FDA-Public Use
  Company Number: DE-ASTRAZENECA-2010SE15974

PATIENT
  Age: 84 Year
  Sex: Female
  Weight: 65 kg

DRUGS (11)
  1. CANDESARTAN [Suspect]
     Indication: HYPERTENSION
     Route: 048
     Dates: start: 20081101, end: 20091104
  2. RAMIPRIL [Suspect]
     Indication: HYPERTENSION
     Route: 048
     Dates: start: 20081101
  3. ASPIRIN [Suspect]
     Indication: CORONARY ARTERY DISEASE
     Route: 048
     Dates: start: 20081101
  4. NITROLINGUAL PUMPSPRAY [Suspect]
     Indication: CORONARY ARTERY DISEASE
     Route: 060
     Dates: start: 20091104, end: 20091104
  5. AMLODIPINE [Concomitant]
     Indication: HYPERTENSION
     Route: 048
     Dates: start: 20081101
  6. PANTOPRAZOLE SODIUM [Concomitant]
     Indication: GASTRECTOMY
     Route: 048
     Dates: start: 19980101
  7. MIRTAZAPINE [Concomitant]
     Indication: DEPRESSION
     Route: 048
     Dates: start: 20081101, end: 20091104
  8. PROCHLORPERAZINE [Concomitant]
     Indication: PAIN
     Route: 048
     Dates: start: 20081101
  9. PALLADON 4MG [Concomitant]
     Indication: PAIN
     Route: 048
     Dates: start: 20081101
  10. BIFITERAL SIRUP [Concomitant]
     Indication: CONSTIPATION
     Route: 048
     Dates: start: 20081101
  11. INSULIN ACTRAPID HM PEN [Concomitant]
     Indication: TYPE 2 DIABETES MELLITUS
     Dosage: 8-4-4 IU
     Route: 058
     Dates: start: 20080101

REACTIONS (1)
  - HYPERSENSITIVITY [None]
